FAERS Safety Report 14913761 (Version 1)
Quarter: 2018Q2

REPORT INFORMATION
  Report Type: Spontaneous
  Country: US (occurrence: US)
  Receive Date: 20180518
  Receipt Date: 20180518
  Transmission Date: 20180711
  Serious: No
  Sender: FDA-Public Use
  Company Number: US-MYLANLABS-2018M1027924

PATIENT
  Sex: Female

DRUGS (2)
  1. FENTANYL. [Suspect]
     Active Substance: FENTANYL
     Dosage: UNK UNK, Q3D, EVERY 72 HOURS
     Route: 062
  2. FENTANYL. [Suspect]
     Active Substance: FENTANYL
     Indication: PAIN
     Dosage: UNK UNK, Q2D, EVERY 48 HOURS
     Route: 062

REACTIONS (3)
  - Drug effect incomplete [Not Recovered/Not Resolved]
  - Application site rash [Not Recovered/Not Resolved]
  - Nausea [Not Recovered/Not Resolved]
